FAERS Safety Report 11626576 (Version 1)
Quarter: 2015Q4

REPORT INFORMATION
  Report Type: Spontaneous
  Country: FR (occurrence: FR)
  Receive Date: 20151013
  Receipt Date: 20151013
  Transmission Date: 20160304
  Serious: Yes (Hospitalization, Other)
  Sender: FDA-Public Use
  Company Number: FR-BRISTOL-MYERS SQUIBB COMPANY-BMS-2015-066644

PATIENT
  Age: 83 Year
  Sex: Male

DRUGS (1)
  1. COUMADINE [Suspect]
     Active Substance: WARFARIN SODIUM
     Indication: PRODUCT USED FOR UNKNOWN INDICATION
     Dosage: 1 MG, QD
     Route: 048

REACTIONS (5)
  - Muscle haemorrhage [Recovered/Resolved]
  - Fall [Unknown]
  - Injury [Unknown]
  - Transfusion [Unknown]
  - Haemoglobin decreased [Unknown]

NARRATIVE: CASE EVENT DATE: 20130328
